FAERS Safety Report 25130826 (Version 1)
Quarter: 2025Q1

REPORT INFORMATION
  Report Type: Report from Study
  Country: US (occurrence: US)
  Receive Date: 20250327
  Receipt Date: 20250327
  Transmission Date: 20250409
  Serious: Yes (Hospitalization, Other)
  Sender: AMGEN
  Company Number: US-AMGEN-USANI2025056880

PATIENT
  Age: 70 Year
  Sex: Male

DRUGS (7)
  1. TARLATAMAB [Suspect]
     Active Substance: TARLATAMAB
     Indication: Small cell lung cancer
     Dosage: 1 MILLIGRAM, Q2WK
     Route: 040
     Dates: start: 20241018
  2. TARLATAMAB [Suspect]
     Active Substance: TARLATAMAB
     Dosage: 10 MILLIGRAM, Q2WK
     Route: 040
     Dates: start: 20241025
  3. TARLATAMAB [Suspect]
     Active Substance: TARLATAMAB
     Dosage: 1 MILLIGRAM, Q2WK
     Route: 040
     Dates: start: 20250102
  4. TARLATAMAB [Suspect]
     Active Substance: TARLATAMAB
     Dosage: 10 MILLIGRAM, Q2WK
     Route: 040
     Dates: start: 20250116
  5. DEXAMETHASONE [Concomitant]
     Active Substance: DEXAMETHASONE
     Dosage: 8 MILLIGRAM, Q2WK
     Route: 040
     Dates: start: 20241018, end: 20250116
  6. ATEZOLIZUMAB [Concomitant]
     Active Substance: ATEZOLIZUMAB
     Dates: start: 20231221
  7. Carboplatin;Etoposide [Concomitant]
     Dates: start: 20230927

REACTIONS (6)
  - Cholecystitis [Recovered/Resolved]
  - Aspartate aminotransferase increased [Recovered/Resolved]
  - Alanine aminotransferase increased [Recovered/Resolved]
  - Pyrexia [Recovered/Resolved]
  - Dysgeusia [Not Recovered/Not Resolved]
  - Fatigue [Not Recovered/Not Resolved]

NARRATIVE: CASE EVENT DATE: 20241026
